FAERS Safety Report 4982308-4 (Version None)
Quarter: 2006Q2

REPORT INFORMATION
  Report Type: 
  Country: None (occurrence: None)
  Receive Date: 20060425
  Receipt Date: 20060410
  Transmission Date: 20061013
  Serious: Yes (Hospitalization)
  Sender: FDA-Public Use
  Company Number: US-ROCHE-444045

PATIENT
  Age: 17 Year
  Sex: Female

DRUGS (4)
  1. ACCUTANE [Suspect]
     Route: 048
     Dates: start: 20060117
  2. ACCUTANE [Suspect]
     Route: 048
  3. ZOLOFT [Concomitant]
     Indication: DEPRESSION
     Route: 048
  4. BIRTH CONTROL PILLS NOS [Concomitant]
     Indication: ORAL CONTRACEPTION
     Route: 048

REACTIONS (12)
  - ALCOHOL USE [None]
  - ANXIETY [None]
  - CONDITION AGGRAVATED [None]
  - DEPRESSION [None]
  - DISEASE RECURRENCE [None]
  - DRUG LEVEL INCREASED [None]
  - FEELING GUILTY [None]
  - IMPULSIVE BEHAVIOUR [None]
  - LIP BLISTER [None]
  - OVERDOSE [None]
  - OVERWEIGHT [None]
  - SUICIDE ATTEMPT [None]
